FAERS Safety Report 17756182 (Version 3)
Quarter: 2020Q2

REPORT INFORMATION
  Report Type: Report from Study
  Country: US (occurrence: US)
  Receive Date: 20200507
  Receipt Date: 20200604
  Transmission Date: 20200714
  Serious: Yes (Hospitalization)
  Sender: FDA-Public Use
  Company Number: US-ALNYLAM PHARMACEUTICALS, INC.-ALN-2020-000623

PATIENT
  Age: 71 Year
  Sex: Female

DRUGS (1)
  1. ONPATTRO [Suspect]
     Active Substance: PATISIRAN SODIUM
     Indication: HEREDITARY NEUROPATHIC AMYLOIDOSIS
     Dosage: UNK
     Route: 042
     Dates: start: 20170404

REACTIONS (5)
  - Hip arthroplasty [Unknown]
  - Condition aggravated [Unknown]
  - Bladder disorder [Unknown]
  - Product dose omission [Unknown]
  - Intentional dose omission [Unknown]

NARRATIVE: CASE EVENT DATE: 201912
